FAERS Safety Report 19087291 (Version 2)
Quarter: 2021Q2

REPORT INFORMATION
  Report Type: Report from Study
  Country: UG (occurrence: UG)
  Receive Date: 20210402
  Receipt Date: 20210514
  Transmission Date: 20210717
  Serious: Yes (Hospitalization, Other)
  Sender: FDA-Public Use
  Company Number: UG-CIPLA LTD.-2021UG02454

PATIENT

DRUGS (4)
  1. ABACAVIR/LAMIVUDINE [Suspect]
     Active Substance: ABACAVIR\LAMIVUDINE
     Indication: HIV INFECTION
     Dosage: 1.5 DOSAGE FORM, BID (90/45MG BID)
     Route: 048
     Dates: start: 20170619, end: 20171211
  2. LOPINAVIR/RITONAVIR [Suspect]
     Active Substance: LOPINAVIR\RITONAVIR
     Indication: HIV INFECTION
     Dosage: 3 DOSAGE FORM, BID (120/30MG BID)
     Route: 048
     Dates: start: 20170619, end: 20171211
  3. ABACAVIR/LAMIVUDINE [Suspect]
     Active Substance: ABACAVIR\LAMIVUDINE
     Dosage: 2.5 DOSAGE FORM, BID (150/75MG BID)
     Route: 048
     Dates: start: 20171211, end: 20181031
  4. LOPINAVIR/RITONAVIR [Suspect]
     Active Substance: LOPINAVIR\RITONAVIR
     Dosage: 5 DOSAGE FORM, BID (200/50MG BID)
     Route: 048
     Dates: start: 20171211, end: 20181031

REACTIONS (2)
  - Malaria [Recovered/Resolved]
  - Pneumonia [Recovered/Resolved]

NARRATIVE: CASE EVENT DATE: 20171209
